FAERS Safety Report 4894711-1 (Version None)
Quarter: 2006Q1

REPORT INFORMATION
  Report Type: 
  Country: None (occurrence: None)
  Receive Date: 20060126
  Receipt Date: 20060126
  Transmission Date: 20060701
  Serious: Yes (Hospitalization)
  Sender: FDA-Public Use
  Company Number: None

PATIENT
  Age: 36 Year
  Sex: Female
  Weight: 51.8 kg

DRUGS (3)
  1. STAVUDINE [Suspect]
     Indication: HIV INFECTION
     Dosage: 30 MG, PO
     Route: 048
     Dates: start: 20051125
  2. LAMIVUDINE [Suspect]
     Indication: HIV INFECTION
     Dosage: 150 MG, PO
     Route: 048
     Dates: start: 20051125
  3. EFAVIRENZ [Suspect]
     Indication: HIV INFECTION
     Dosage: 600 MG, PO
     Route: 048
     Dates: start: 20051125

REACTIONS (19)
  - ANAEMIA [None]
  - APLASIA PURE RED CELL [None]
  - BICYTOPENIA [None]
  - BREATH SOUNDS ABNORMAL [None]
  - DYSPNOEA [None]
  - HEADACHE [None]
  - HYPERPLASIA [None]
  - MALAISE [None]
  - MUSCULOSKELETAL STIFFNESS [None]
  - MYELODYSPLASTIC SYNDROME [None]
  - NEUTROPENIA [None]
  - PAIN IN EXTREMITY [None]
  - PHOTOPHOBIA [None]
  - PYREXIA [None]
  - RED BLOOD CELL ABNORMALITY [None]
  - RENAL FAILURE [None]
  - RESPIRATORY RATE INCREASED [None]
  - SHOCK [None]
  - VIRAL INFECTION [None]
